FAERS Safety Report 9165043 (Version 1)
Quarter: 2013Q1

REPORT INFORMATION
  Report Type: Spontaneous
  Country: BR (occurrence: BR)
  Receive Date: 20130315
  Receipt Date: 20130315
  Transmission Date: 20140127
  Serious: Yes (Hospitalization, Other)
  Sender: FDA-Public Use
  Company Number: BR-ABBOTT-13X-020-1061901-00

PATIENT
  Age: 85 None
  Sex: Female
  Weight: 58 kg

DRUGS (13)
  1. SYNTHROID [Suspect]
     Indication: HYPOTHYROIDISM
     Route: 048
  2. SYNTHROID [Suspect]
     Indication: HYPERTHYROIDISM
  3. GLUCERNA [Suspect]
     Indication: PRODUCT USED FOR UNKNOWN INDICATION
     Dosage: ONLY 1 GLUCERNA SR PACKAGE
  4. ENSURE [Concomitant]
     Indication: ASTHENIA
     Dosage: 200ML + 6 MEASURES
     Route: 048
     Dates: end: 201302
  5. ENSURE [Concomitant]
     Indication: PROPHYLAXIS
     Dosage: 200ML + 6 MEASURES
     Route: 048
     Dates: start: 201303
  6. SINVASCOR [Concomitant]
     Indication: BLOOD CHOLESTEROL INCREASED
     Route: 048
  7. SELOZOK [Concomitant]
     Indication: HYPERTENSION
     Route: 048
  8. METFORMIN [Concomitant]
     Indication: DIABETES MELLITUS
     Dosage: 1 TABLET AT LUNCH/ 1 TABLET AT DINNER
     Route: 048
  9. HIGROTON [Concomitant]
     Indication: CONVULSION
     Route: 048
  10. HIGROTON [Concomitant]
     Indication: PROPHYLAXIS
  11. DIOVAN [Concomitant]
     Indication: HYPERTENSION
     Dosage: HALF TABLET IN THE MORNING
     Route: 048
  12. AAS PROTECT [Concomitant]
     Indication: ANTICOAGULANT THERAPY
     Route: 048
  13. UNKNOWN MEDICATIONS [Concomitant]
     Indication: PRODUCT USED FOR UNKNOWN INDICATION

REACTIONS (5)
  - Chest pain [Unknown]
  - Cerebrovascular accident [Recovering/Resolving]
  - Pneumonia [Recovered/Resolved]
  - Diarrhoea [Recovered/Resolved]
  - Contraindication to medical treatment [None]
